FAERS Safety Report 7626847-6 (Version None)
Quarter: 2011Q3

REPORT INFORMATION
  Report Type: 
  Country: None (occurrence: None)
  Receive Date: 20110721
  Receipt Date: 20101202
  Transmission Date: 20111222
  Serious: No
  Sender: FDA-Public Use
  Company Number: US-BAYER-2011-006301

PATIENT
  Age: 54 Year
  Sex: Female
  Weight: 95.238 kg

DRUGS (9)
  1. TOFRANIL [Concomitant]
     Dosage: 10 MG, UNK
  2. VESICARE [Concomitant]
     Dosage: 5 MG, UNK
  3. BETASERON [Suspect]
     Dosage: 0.25 MG, QOD
     Route: 058
  4. NITROFURANTOIN [Concomitant]
     Dosage: 100 MG, UNK
  5. TRIAMIZIDE [Concomitant]
     Dosage: 37.5-25 UNK,
  6. LEVOXYL [Concomitant]
     Dosage: 100 MCG, UNK
  7. VITAMIN D [Concomitant]
     Dosage: 1000 U,  UNK
  8. FERROUS SULFATE TAB [Concomitant]
     Dosage: 18 MG, UNK
  9. GABAPENTIN [Concomitant]
     Dosage: 100 MG, UNK

REACTIONS (1)
  - INJECTION SITE INDURATION [None]
